FAERS Safety Report 18104176 (Version 1)
Quarter: 2020Q3

REPORT INFORMATION
  Report Type: Spontaneous
  Country: US (occurrence: US)
  Receive Date: 20200803
  Receipt Date: 20200803
  Transmission Date: 20201103
  Serious: No
  Sender: FDA-Public Use
  Company Number: US-ARBOR PHARMACEUTICALS, LLC-US-2019ARB001016

PATIENT
  Age: 66 Year
  Sex: Male

DRUGS (2)
  1. BIDIL [Suspect]
     Active Substance: HYDRALAZINE HYDROCHLORIDE\ISOSORBIDE DINITRATE
     Indication: CARDIAC DISORDER
     Dosage: 2 TABLETS, 3 TIMES A DAY
     Route: 048
     Dates: start: 201906
  2. CARVEDILOL. [Concomitant]
     Active Substance: CARVEDILOL
     Indication: CARDIAC DISORDER
     Dosage: 25 MG, BID, MORNING AND NIGHT

REACTIONS (1)
  - Headache [Unknown]

NARRATIVE: CASE EVENT DATE: 201906
